FAERS Safety Report 11567763 (Version 1)
Quarter: 2015Q3

REPORT INFORMATION
  Report Type: Spontaneous
  Country: US (occurrence: US)
  Receive Date: 20150916
  Receipt Date: 20150916
  Transmission Date: 20151125
  Serious: No
  Sender: FDA-Public Use
  Company Number: US-ELI_LILLY_AND_COMPANY-US200907006939

PATIENT
  Age: 74 Year
  Sex: Female

DRUGS (3)
  1. FORTEO [Suspect]
     Active Substance: TERIPARATIDE
     Dosage: UNK, UNKNOWN
     Route: 065
     Dates: start: 2008
  2. FORTEO [Suspect]
     Active Substance: TERIPARATIDE
  3. PROPANOLOL HYDROCHLORIDE [Concomitant]
     Active Substance: PROPRANOLOL HYDROCHLORIDE
     Dosage: 10 MG, 2/D

REACTIONS (7)
  - Joint swelling [Unknown]
  - Oedema peripheral [Unknown]
  - Blood pressure increased [Unknown]
  - Pruritus generalised [Unknown]
  - Atrial fibrillation [Unknown]
  - Palpitations [Unknown]
  - Rash [Unknown]

NARRATIVE: CASE EVENT DATE: 200907
